FAERS Safety Report 9404082 (Version 1)
Quarter: 2013Q3

REPORT INFORMATION
  Report Type: Spontaneous
  Country: US (occurrence: None)
  Receive Date: 20130716
  Receipt Date: 20130716
  Transmission Date: 20140515
  Serious: Yes (Other)
  Sender: FDA-Public Use
  Company Number: None

PATIENT
  Age: 37 Year
  Sex: Male
  Weight: 114.31 kg

DRUGS (2)
  1. ESCITALOPRAM [Suspect]
     Route: 048
     Dates: start: 20050501, end: 20130614
  2. BUSPIRONE [Suspect]
     Indication: DEPRESSION
     Route: 048
     Dates: start: 20110501

REACTIONS (7)
  - Loss of consciousness [None]
  - Headache [None]
  - Painful ejaculation [None]
  - Convulsion [None]
  - Pain [None]
  - Hyponatraemia [None]
  - Syncope [None]
